FAERS Safety Report 6693127-5 (Version None)
Quarter: 2010Q2

REPORT INFORMATION
  Report Type: 
  Country: None (occurrence: None)
  Receive Date: 20100420
  Receipt Date: 20100405
  Transmission Date: 20101027
  Serious: Yes (Hospitalization)
  Sender: FDA-Public Use
  Company Number: KV200800451

PATIENT
  Age: 61 Year
  Sex: Male
  Weight: 77.6 kg

DRUGS (23)
  1. PROPAFENONE HCL [Suspect]
     Indication: ATRIAL FIBRILLATION
     Dosage: 225 MG, QD, ORAL
     Route: 048
     Dates: start: 20060707
  2. PROPAFENONE HCL [Suspect]
     Dosage: ORAL
     Route: 048
     Dates: start: 20060616
  3. DILTIAZEM ER (DILTIAZEM HYDROCHLORIDE) [Concomitant]
  4. DIGOXIN [Concomitant]
  5. MIRAPEX [Concomitant]
  6. CRESTOR [Concomitant]
  7. NITROQUICK (GLYCERYL TRINITRATE) [Concomitant]
  8. RANITIDINE [Concomitant]
  9. ATENOLOL [Concomitant]
  10. SULFACETAMIDE SODIUM [Concomitant]
  11. PLAVIX [Concomitant]
  12. NAPROXEN [Concomitant]
  13. OMEPRAZOLE [Concomitant]
  14. CLONAZEPAM [Concomitant]
  15. ASPIRIN [Concomitant]
  16. LIPITOR [Concomitant]
  17. TRICOR /00499301/ (FENOFIBRATE) [Concomitant]
  18. BUPROPION HCL [Concomitant]
  19. ZOFRAN /00955301/ (ONDANSETRON) [Concomitant]
  20. TYLENOL /00020001/ (PARACETAMOL) [Concomitant]
  21. MULTIVITAMIN /00831701/ (VITAMINS NOS) [Concomitant]
  22. IMDUR (ISOSORIDE MONONITRATE) [Concomitant]
  23. LANOXIN [Concomitant]

REACTIONS (39)
  - ABDOMINAL PAIN UPPER [None]
  - ANGINA PECTORIS [None]
  - ANXIETY [None]
  - ARTERIOSCLEROSIS CORONARY ARTERY [None]
  - ARTHRALGIA [None]
  - ASTHENIA [None]
  - ATRIAL FIBRILLATION [None]
  - BRONCHITIS [None]
  - CARDIAC FLUTTER [None]
  - COGNITIVE DISORDER [None]
  - CONFUSIONAL STATE [None]
  - CONJUNCTIVITIS [None]
  - CONSTIPATION [None]
  - DRUG INEFFECTIVE [None]
  - DYSPHAGIA [None]
  - EYE INFLAMMATION [None]
  - EYE IRRITATION [None]
  - GASTROOESOPHAGEAL REFLUX DISEASE [None]
  - HIATUS HERNIA [None]
  - HYPERHIDROSIS [None]
  - HYPERLIPIDAEMIA [None]
  - HYPOAESTHESIA [None]
  - INSOMNIA [None]
  - JOINT SWELLING [None]
  - NASAL CONGESTION [None]
  - OEDEMA [None]
  - OESOPHAGEAL SPASM [None]
  - PALPITATIONS [None]
  - PERIPHERAL COLDNESS [None]
  - POLLAKIURIA [None]
  - PRODUCT QUALITY ISSUE [None]
  - PRODUCTIVE COUGH [None]
  - PTERYGIUM [None]
  - RESPIRATORY TRACT INFECTION [None]
  - TACHYARRHYTHMIA [None]
  - TRANSIENT GLOBAL AMNESIA [None]
  - TREATMENT NONCOMPLIANCE [None]
  - TREMOR [None]
  - URINARY RETENTION [None]
